APPROVED DRUG PRODUCT: EMEND
Active Ingredient: FOSAPREPITANT DIMEGLUMINE
Strength: EQ 150MG BASE/VIAL
Dosage Form/Route: POWDER;INTRAVENOUS
Application: N022023 | Product #002 | TE Code: AP
Applicant: MERCK AND CO INC
Approved: Nov 12, 2010 | RLD: Yes | RS: Yes | Type: RX